FAERS Safety Report 7457823-4 (Version None)
Quarter: 2011Q2

REPORT INFORMATION
  Report Type: 
  Country: None (occurrence: None)
  Receive Date: 20110504
  Receipt Date: 20110421
  Transmission Date: 20111010
  Serious: Yes (Other)
  Sender: FDA-Public Use
  Company Number: PHHY2011IL36647

PATIENT
  Age: 77 Year
  Sex: Male

DRUGS (1)
  1. ZOLEDRONIC ACID [Suspect]

REACTIONS (1)
  - OSTEONECROSIS OF JAW [None]
